FAERS Safety Report 7015942-0 (Version None)
Quarter: 2010Q3

REPORT INFORMATION
  Report Type: 
  Country: None (occurrence: None)
  Receive Date: 20100927
  Receipt Date: 20091208
  Transmission Date: 20110219
  Serious: No
  Sender: FDA-Public Use
  Company Number: US-ASTRAZENECA-2009SE30781

PATIENT
  Age: 64 Year
  Sex: Female
  Weight: 101.6 kg

DRUGS (3)
  1. ARIMIDEX [Suspect]
     Indication: BREAST CANCER
     Route: 048
     Dates: start: 20091130
  2. LORAZEPAM [Concomitant]
  3. SYNTHROID [Concomitant]

REACTIONS (5)
  - APHTHOUS STOMATITIS [None]
  - CONTUSION [None]
  - FEELING ABNORMAL [None]
  - SKIN WRINKLING [None]
  - WEIGHT INCREASED [None]
